FAERS Safety Report 7477946-3 (Version None)
Quarter: 2011Q2

REPORT INFORMATION
  Report Type: 
  Country: None (occurrence: None)
  Receive Date: 20110513
  Receipt Date: 20110504
  Transmission Date: 20111010
  Serious: Yes (Death, Life-Threatening)
  Sender: FDA-Public Use
  Company Number: DE-TEVA-279719GER

PATIENT
  Sex: Female
  Weight: 52 kg

DRUGS (4)
  1. FUROSEMIDE [Concomitant]
     Dosage: 20 MILLIGRAM; IN THE MORNING
  2. BUPRENORPHIN-RATIOPHARM [Suspect]
     Dosage: 1260 MICROGRAM;
     Route: 062
  3. BUPRENORPHIN-RATIOPHARM [Suspect]
     Indication: ANALGESIC THERAPY
     Dosage: 1680 MICROGRAM;
     Route: 062
     Dates: start: 20110228
  4. MOVIPREP [Concomitant]

REACTIONS (6)
  - ISCHAEMIA [None]
  - DRUG INTOLERANCE [None]
  - ASPIRATION [None]
  - PYREXIA [None]
  - PNEUMONIA ASPIRATION [None]
  - RESPIRATORY DEPRESSION [None]
